FAERS Safety Report 21558173 (Version 1)
Quarter: 2022Q4

REPORT INFORMATION
  Report Type: Report from Study
  Country: MX (occurrence: MX)
  Receive Date: 20221107
  Receipt Date: 20221107
  Transmission Date: 20230113
  Serious: Yes (Other)
  Sender: FDA-Public Use
  Company Number: MX-002147023-NVSC2022MX249458

PATIENT
  Age: 65 Year
  Sex: Female

DRUGS (2)
  1. METFORMIN HYDROCHLORIDE\VILDAGLIPTIN [Suspect]
     Active Substance: METFORMIN HYDROCHLORIDE\VILDAGLIPTIN
     Indication: Blood glucose abnormal
     Dosage: 1 DOSAGE FORM (50/850 MG), BID, BY MOUTH
     Route: 048
     Dates: start: 202002
  2. METFORMIN HYDROCHLORIDE\VILDAGLIPTIN [Suspect]
     Active Substance: METFORMIN HYDROCHLORIDE\VILDAGLIPTIN
     Dosage: 1.5 DOSAGE FORM, QD (ONE AND A HALF TABLET, BY MOUTH)
     Route: 048

REACTIONS (8)
  - Neuropathy peripheral [Recovering/Resolving]
  - Arthralgia [Recovering/Resolving]
  - Muscular weakness [Unknown]
  - Pruritus [Unknown]
  - Limb discomfort [Unknown]
  - Fall [Unknown]
  - Hypoaesthesia [Unknown]
  - Off label use [Unknown]

NARRATIVE: CASE EVENT DATE: 20221014
